FAERS Safety Report 22356304 (Version 1)
Quarter: 2023Q2

REPORT INFORMATION
  Report Type: Report from Study
  Country: CN (occurrence: None)
  Receive Date: 20230523
  Receipt Date: 20230523
  Transmission Date: 20230722
  Serious: Yes (Life-Threatening, Hospitalization, Other)
  Sender: FDA-Public Use
  Company Number: 2022A093809

PATIENT
  Age: 73 Year
  Sex: Male

DRUGS (59)
  1. DURVALUMAB [Suspect]
     Active Substance: DURVALUMAB
     Indication: Non-small cell lung cancer
     Route: 042
     Dates: start: 20211214, end: 20211214
  2. DURVALUMAB [Suspect]
     Active Substance: DURVALUMAB
     Indication: Non-small cell lung cancer
     Route: 042
     Dates: start: 20220105, end: 20220105
  3. DURVALUMAB [Suspect]
     Active Substance: DURVALUMAB
     Indication: Non-small cell lung cancer
     Route: 042
     Dates: start: 20220126, end: 20220126
  4. DURVALUMAB [Suspect]
     Active Substance: DURVALUMAB
     Indication: Non-small cell lung cancer
     Route: 042
     Dates: start: 20220217, end: 20220217
  5. DURVALUMAB [Suspect]
     Active Substance: DURVALUMAB
     Indication: Non-small cell lung cancer
     Route: 042
     Dates: start: 20220408, end: 20220408
  6. TREMELIMUMAB [Suspect]
     Active Substance: TREMELIMUMAB
     Indication: Non-small cell lung cancer
     Route: 042
     Dates: start: 20211214, end: 20211214
  7. TREMELIMUMAB [Suspect]
     Active Substance: TREMELIMUMAB
     Indication: Non-small cell lung cancer
     Route: 042
     Dates: start: 20220105, end: 20220105
  8. TREMELIMUMAB [Suspect]
     Active Substance: TREMELIMUMAB
     Indication: Non-small cell lung cancer
     Route: 042
     Dates: start: 20220126, end: 20220126
  9. TREMELIMUMAB [Suspect]
     Active Substance: TREMELIMUMAB
     Indication: Non-small cell lung cancer
     Route: 042
     Dates: start: 20220217, end: 20220217
  10. TREMELIMUMAB [Suspect]
     Active Substance: TREMELIMUMAB
     Indication: Non-small cell lung cancer
     Route: 042
     Dates: start: 20220408, end: 20220408
  11. PEMETREXED [Suspect]
     Active Substance: PEMETREXED
     Indication: Non-small cell lung cancer
     Route: 042
     Dates: start: 20211214, end: 20211214
  12. PEMETREXED [Suspect]
     Active Substance: PEMETREXED
     Indication: Non-small cell lung cancer
     Route: 042
     Dates: start: 20220105, end: 20220105
  13. PEMETREXED [Suspect]
     Active Substance: PEMETREXED
     Indication: Non-small cell lung cancer
     Route: 042
     Dates: start: 20220126, end: 20220126
  14. PEMETREXED [Suspect]
     Active Substance: PEMETREXED
     Indication: Non-small cell lung cancer
     Route: 042
     Dates: start: 20220217, end: 20220217
  15. PEMETREXED [Suspect]
     Active Substance: PEMETREXED
     Indication: Non-small cell lung cancer
     Route: 042
     Dates: start: 20220310, end: 20220310
  16. PEMETREXED [Suspect]
     Active Substance: PEMETREXED
     Indication: Non-small cell lung cancer
     Route: 042
     Dates: start: 20220408, end: 20220408
  17. PEMETREXED [Suspect]
     Active Substance: PEMETREXED
     Indication: Non-small cell lung cancer
     Route: 042
     Dates: start: 20220512, end: 20220512
  18. PEMETREXED [Suspect]
     Active Substance: PEMETREXED
     Indication: Non-small cell lung cancer
     Route: 042
     Dates: start: 20220609, end: 20220609
  19. CARBOPLATIN [Suspect]
     Active Substance: CARBOPLATIN
     Indication: Non-small cell lung cancer
     Dosage: 5.0 AUC EVERY THREE WEEKS
     Route: 042
     Dates: start: 20211214, end: 20211214
  20. CARBOPLATIN [Suspect]
     Active Substance: CARBOPLATIN
     Indication: Non-small cell lung cancer
     Dosage: 5.0 AUC EVERY THREE WEEKS
     Route: 042
     Dates: start: 20220105, end: 20220105
  21. CARBOPLATIN [Suspect]
     Active Substance: CARBOPLATIN
     Indication: Non-small cell lung cancer
     Dosage: 5.0 AUC EVERY THREE WEEKS
     Route: 042
     Dates: start: 20220126, end: 20220126
  22. CARBOPLATIN [Suspect]
     Active Substance: CARBOPLATIN
     Indication: Non-small cell lung cancer
     Dosage: 5.0 AUC EVERY THREE WEEKS
     Route: 042
     Dates: start: 20220217, end: 20220217
  23. RECOMBINANT HUMANTHROMBOPOI ETIN INJECTION [Concomitant]
     Indication: Treatment delayed
     Dosage: 15000.00 U/ML DAILY
     Route: 058
     Dates: start: 20220301, end: 20220306
  24. AMLODIPINE [Concomitant]
     Active Substance: AMLODIPINE BESYLATE
     Indication: Hypertension
     Route: 048
     Dates: start: 201709
  25. VITAMIN B12 [Concomitant]
     Active Substance: CYANOCOBALAMIN
     Indication: Vitamin supplementation
     Dosage: 1.0000 MG ST
     Route: 042
     Dates: start: 20220217, end: 20220217
  26. FOSAPREPITANT DIMEGLUMINE [Concomitant]
     Active Substance: FOSAPREPITANT DIMEGLUMINE
     Indication: Prophylaxis of nausea and vomiting
     Dosage: 150.0000 MG ST
     Route: 042
     Dates: start: 20220217, end: 20220217
  27. DEXAMETHASONE SODIUM PHOSPHATE [Concomitant]
     Active Substance: DEXAMETHASONE SODIUM PHOSPHATE
     Indication: Inflammation
     Dosage: 5.0000 MG ST
     Route: 042
     Dates: start: 20220217, end: 20220217
  28. HUMAN GRANULOCYTE STIMULATING FACTOR INJECTION [Concomitant]
     Indication: White blood cell count decreased
     Route: 058
     Dates: start: 20220209, end: 20220209
  29. HUMAN GRANULOCYTE STIMULATING FACTOR INJECTION [Concomitant]
     Indication: White blood cell count decreased
     Route: 058
     Dates: start: 20220209, end: 20220209
  30. HUMAN GRANULOCYTE STIMULATING FACTOR INJECTION [Concomitant]
     Indication: Treatment delayed
     Route: 058
     Dates: start: 20220209, end: 20220209
  31. HUMAN GRANULOCYTE STIMULATING FACTOR INJECTION [Concomitant]
     Indication: White blood cell count decreased
     Route: 058
     Dates: start: 20220210, end: 20220210
  32. HUMAN GRANULOCYTE STIMULATING FACTOR INJECTION [Concomitant]
     Indication: White blood cell count decreased
     Route: 058
     Dates: start: 20220210, end: 20220210
  33. HUMAN GRANULOCYTE STIMULATING FACTOR INJECTION [Concomitant]
     Indication: Treatment delayed
     Route: 058
     Dates: start: 20220210, end: 20220210
  34. HUMAN GRANULOCYTE STIMULATING FACTOR INJECTION [Concomitant]
     Indication: White blood cell count decreased
     Route: 058
     Dates: start: 20220225, end: 20220301
  35. HUMAN GRANULOCYTE STIMULATING FACTOR INJECTION [Concomitant]
     Indication: White blood cell count decreased
     Route: 058
     Dates: start: 20220225, end: 20220301
  36. HUMAN GRANULOCYTE STIMULATING FACTOR INJECTION [Concomitant]
     Indication: Treatment delayed
     Route: 058
     Dates: start: 20220225, end: 20220301
  37. DIYUSHENGBAI TABLET [Concomitant]
     Indication: White blood cell count decreased
     Route: 048
     Dates: start: 20220225, end: 20220301
  38. RECOMBINANT HUMAN THROMBOPOIETIN INJECTION [Concomitant]
     Indication: Platelet count decreased
     Dosage: 15000.00 U DAILY
     Route: 058
     Dates: start: 20220211, end: 20220211
  39. RECOMBINANT HUMAN THROMBOPOIETIN INJECTION [Concomitant]
     Indication: Treatment delayed
     Dosage: 15000.00 U DAILY
     Route: 058
     Dates: start: 20220211, end: 20220211
  40. RECOMBINANT HUMAN THROMBOPOIETIN INJECTION [Concomitant]
     Indication: Platelet count decreased
     Dosage: 15000.00 U DAILY
     Route: 058
     Dates: start: 20220211, end: 20220211
  41. RECOMBINANT HUMAN THROMBOPOIETIN INJECTION [Concomitant]
     Indication: Platelet count decreased
     Dosage: 15000.00 U DAILY
     Route: 058
     Dates: start: 20220225, end: 20220301
  42. RECOMBINANT HUMAN THROMBOPOIETIN INJECTION [Concomitant]
     Indication: Treatment delayed
     Dosage: 15000.00 U DAILY
     Route: 058
     Dates: start: 20220225, end: 20220301
  43. RECOMBINANT HUMAN THROMBOPOIETIN INJECTION [Concomitant]
     Indication: Platelet count decreased
     Dosage: 15000.00 U DAILY
     Route: 058
     Dates: start: 20220225, end: 20220301
  44. PALONOSETRON HYDROCHLORIDE [Concomitant]
     Active Substance: PALONOSETRON HYDROCHLORIDE
     Indication: Prophylaxis of nausea and vomiting
     Dosage: 0.2500 MG ST
     Route: 042
     Dates: start: 20220217, end: 20220217
  45. MIXED NUCLEOSIDE TABLETS [Concomitant]
     Indication: Treatment delayed
     Route: 048
     Dates: start: 20220209, end: 20220223
  46. MIXED NUCLEOSIDE TABLETS [Concomitant]
     Indication: Anaemia
     Route: 048
     Dates: start: 20220209, end: 20220223
  47. MIXED NUCLEOSIDE TABLETS [Concomitant]
     Indication: Platelet count decreased
     Route: 048
     Dates: start: 20220209, end: 20220223
  48. MIXED NUCLEOSIDE TABLETS [Concomitant]
     Indication: Treatment delayed
     Route: 048
     Dates: start: 20220301, end: 20220330
  49. MIXED NUCLEOSIDE TABLETS [Concomitant]
     Indication: Anaemia
     Route: 048
     Dates: start: 20220301, end: 20220330
  50. MIXED NUCLEOSIDE TABLETS [Concomitant]
     Indication: Platelet count decreased
     Route: 048
     Dates: start: 20220301, end: 20220330
  51. ILAPRAZOLE SODIUM FOR INJECTION [Concomitant]
     Indication: Gastric disorder
     Dosage: 10.0000 MG ST
     Route: 042
     Dates: start: 20220217, end: 20220217
  52. FERROUS SUCCINATE TABLETS [Concomitant]
     Indication: Treatment delayed
     Route: 048
     Dates: start: 20220301
  53. HETROMBOPAG ETHANOLAMINE TABLETS [Concomitant]
     Indication: Treatment delayed
     Route: 048
     Dates: start: 20220301, end: 20220330
  54. HETROMBOPAG ETHANOLAMINE TABLETS [Concomitant]
     Indication: Anaemia
     Route: 048
     Dates: start: 20220301, end: 20220330
  55. HETROMBOPAG ETHANOLAMINE TABLETS [Concomitant]
     Indication: Platelet count decreased
     Route: 048
     Dates: start: 20220301, end: 20220330
  56. DEXAMETHASONE TABLETS [Concomitant]
     Indication: Chemotherapy
     Dates: start: 20220125, end: 20220127
  57. RABELLA FOR INJECTION [Concomitant]
     Indication: Gastric disorder
     Dosage: 20.0000 MG ST
     Dates: start: 20220126, end: 20220126
  58. RECOMBINANT HUMAN GRANULOCYTE COLONY STIMULATING FACTOR INJECTION [Concomitant]
     Indication: Treatment delayed
     Dates: start: 20220415, end: 20220419
  59. BURNET RISING WHITE TABLETS [Concomitant]
     Indication: White blood cell count decreased
     Dates: start: 20220225, end: 20220301

REACTIONS (1)
  - Myelosuppression [Recovered/Resolved]

NARRATIVE: CASE EVENT DATE: 20220301
